FAERS Safety Report 11102315 (Version 1)
Quarter: 2015Q2

REPORT INFORMATION
  Report Type: Report from Study
  Country: CL (occurrence: CL)
  Receive Date: 20150511
  Receipt Date: 20150511
  Transmission Date: 20150821
  Serious: Yes (Other)
  Sender: FDA-Public Use
  Company Number: CL-ROCHE-1575735

PATIENT
  Age: 49 Year
  Sex: Female
  Weight: 80 kg

DRUGS (2)
  1. LOSARTAN [Concomitant]
     Active Substance: LOSARTAN
     Indication: HYPERTENSION
     Route: 048
     Dates: start: 2005
  2. XELODA [Suspect]
     Active Substance: CAPECITABINE
     Indication: COLORECTAL CANCER
     Dosage: 14 DAYS PER CYCLE
     Route: 048
     Dates: start: 20150318

REACTIONS (5)
  - Abdominal pain upper [Unknown]
  - Immune system disorder [Unknown]
  - Dizziness [Unknown]
  - Pain [Not Recovered/Not Resolved]
  - Nausea [Unknown]
